FAERS Safety Report 10077501 (Version 1)
Quarter: 2014Q2

REPORT INFORMATION
  Report Type: Spontaneous
  Country: US (occurrence: US)
  Receive Date: 20140414
  Receipt Date: 20140414
  Transmission Date: 20141212
  Serious: No
  Sender: FDA-Public Use
  Company Number: US-BANPHARM-20131636

PATIENT
  Age: 56 Year
  Sex: Male
  Weight: 72.57 kg

DRUGS (1)
  1. ALEVE LIQUID GELS 220 MG [Suspect]
     Indication: PAIN
     Dosage: 4 DF, QD,
     Route: 048
     Dates: start: 201307, end: 201308

REACTIONS (4)
  - Dizziness [Recovered/Resolved]
  - Fatigue [Recovered/Resolved]
  - Nausea [Recovered/Resolved]
  - Incorrect dose administered [Unknown]
